FAERS Safety Report 7047247-6 (Version None)
Quarter: 2010Q4

REPORT INFORMATION
  Report Type: 
  Country: None (occurrence: None)
  Receive Date: 20101015
  Receipt Date: 20090429
  Transmission Date: 20110411
  Serious: Yes (Death, Hospitalization)
  Sender: FDA-Public Use
  Company Number: BR-ROCHE-723226

PATIENT
  Sex: Female

DRUGS (2)
  1. HERCEPTIN [Suspect]
     Route: 065
  2. XELODA [Suspect]
     Route: 065

REACTIONS (2)
  - DEATH [None]
  - SURGERY [None]
